FAERS Safety Report 6202136-1 (Version None)
Quarter: 2009Q2

REPORT INFORMATION
  Report Type: 
  Country: None (occurrence: None)
  Receive Date: 20090520
  Receipt Date: 20090507
  Transmission Date: 20091009
  Serious: Yes (Death)
  Sender: FDA-Public Use
  Company Number: OPER20090100

PATIENT
  Age: 29 Year
  Sex: Male

DRUGS (2)
  1. OPANA ER [Suspect]
     Dosage: INTRA-NASAL
     Route: 045
     Dates: end: 20090426
  2. ALCOHOL [Suspect]
     Dosage: ORAL
     Route: 048
     Dates: end: 20090426

REACTIONS (4)
  - ALCOHOL USE [None]
  - DRUG ABUSE [None]
  - INCORRECT ROUTE OF DRUG ADMINISTRATION [None]
  - OVERDOSE [None]
